FAERS Safety Report 8063528-1 (Version None)
Quarter: 2012Q1

REPORT INFORMATION
  Report Type: 
  Country: None (occurrence: None)
  Receive Date: 20120123
  Receipt Date: 20120113
  Transmission Date: 20120608
  Serious: Yes (Hospitalization)
  Sender: FDA-Public Use
  Company Number: US-ELI_LILLY_AND_COMPANY-US201201005034

PATIENT
  Sex: Male

DRUGS (4)
  1. HUMALOG MIX 75/25 [Suspect]
     Dosage: 35 U, EACH EVENING
  2. HUMALOG MIX 75/25 [Suspect]
     Dosage: 25 U, EACH MORNING
  3. HUMALOG MIX 75/25 [Suspect]
     Dosage: 35 U, EACH EVENING
  4. HUMALOG MIX 75/25 [Suspect]
     Indication: DIABETES MELLITUS
     Dosage: 25 U, EACH MORNING

REACTIONS (4)
  - EXPIRED DRUG ADMINISTERED [None]
  - HOSPITALISATION [None]
  - BLOOD GLUCOSE INCREASED [None]
  - BLOOD GLUCOSE DECREASED [None]
